FAERS Safety Report 22327509 (Version 1)
Quarter: 2023Q2

REPORT INFORMATION
  Report Type: Spontaneous
  Country: US (occurrence: US)
  Receive Date: 20230516
  Receipt Date: 20230516
  Transmission Date: 20230721
  Serious: No
  Sender: FDA-Public Use
  Company Number: US-RADIUS HEALTH INC.-2022US005643

PATIENT

DRUGS (1)
  1. TYMLOS [Suspect]
     Active Substance: ABALOPARATIDE
     Indication: Product used for unknown indication
     Dosage: 80 MCG, DAILY
     Route: 058
     Dates: start: 20221109

REACTIONS (6)
  - Chills [Unknown]
  - Pollakiuria [Unknown]
  - Dysuria [Unknown]
  - Urinary tract infection [Unknown]
  - Sleep disorder [Unknown]
  - Nocturia [Unknown]

NARRATIVE: CASE EVENT DATE: 20221121
